FAERS Safety Report 14694727 (Version 1)
Quarter: 2018Q1

REPORT INFORMATION
  Report Type: Spontaneous
  Country: US (occurrence: US)
  Receive Date: 20180329
  Receipt Date: 20180329
  Transmission Date: 20180509
  Serious: No
  Sender: FDA-Public Use
  Company Number: US-BAYER-2018-061454

PATIENT
  Sex: Female

DRUGS (6)
  1. BETASERON [Suspect]
     Active Substance: INTERFERON BETA-1B
     Indication: MULTIPLE SCLEROSIS
     Dosage: UNK
  2. BACLOFEN. [Concomitant]
     Active Substance: BACLOFEN
     Dosage: 20 MG, UNK
  3. GABAPENTIN. [Concomitant]
     Active Substance: GABAPENTIN
  4. PRILOSEC [Concomitant]
     Active Substance: OMEPRAZOLE MAGNESIUM
  5. TIZANIDINE. [Concomitant]
     Active Substance: TIZANIDINE
  6. LYRICA [Concomitant]
     Active Substance: PREGABALIN

REACTIONS (2)
  - Injection site bruising [None]
  - Injection site reaction [None]
